FAERS Safety Report 14593042 (Version 1)
Quarter: 2018Q1

REPORT INFORMATION
  Report Type: Spontaneous
  Country: US (occurrence: US)
  Receive Date: 20180302
  Receipt Date: 20180302
  Transmission Date: 20180509
  Serious: No
  Sender: FDA-Public Use
  Company Number: US-ENDO PHARMACEUTICALS INC-2017-006025

PATIENT
  Sex: Female
  Weight: 65.76 kg

DRUGS (1)
  1. XIAFLEX [Suspect]
     Active Substance: COLLAGENASE CLOSTRIDIUM HISTOLYTICUM
     Indication: DUPUYTREN^S CONTRACTURE
     Dosage: 2 TO 3 INJECTIONS INTO LEFT HAND,PINKIE FINGER,FOR CONTRACTURE AFFECTING MP JOINT
     Route: 026
     Dates: start: 2013

REACTIONS (8)
  - Injection site bruising [Recovered/Resolved]
  - Drug ineffective [Unknown]
  - Contusion [Recovered/Resolved]
  - Rash [Recovered/Resolved]
  - Dupuytren^s contracture [Unknown]
  - Injection site pain [Recovered/Resolved]
  - Injection site swelling [Recovered/Resolved]
  - Injection site rash [Recovered/Resolved]

NARRATIVE: CASE EVENT DATE: 2013
